FAERS Safety Report 5920514-2 (Version None)
Quarter: 2008Q4

REPORT INFORMATION
  Report Type: 
  Country: None (occurrence: None)
  Receive Date: 20081016
  Receipt Date: 20081010
  Transmission Date: 20090506
  Serious: Yes (Other)
  Sender: FDA-Public Use
  Company Number: B0541154A

PATIENT
  Age: 39 Year
  Sex: Female

DRUGS (2)
  1. AMERGE [Suspect]
     Indication: DRUG USE FOR UNKNOWN INDICATION
     Route: 048
     Dates: start: 20081001
  2. CHINESE MEDICINE [Concomitant]
     Route: 048

REACTIONS (3)
  - CEREBROVASCULAR DISORDER [None]
  - DISCOMFORT [None]
  - HYPOAESTHESIA [None]
